FAERS Safety Report 10220162 (Version 1)
Quarter: 2014Q2

REPORT INFORMATION
  Report Type: Spontaneous
  Country: LU (occurrence: LU)
  Receive Date: 20140605
  Receipt Date: 20140605
  Transmission Date: 20141212
  Serious: Yes (Hospitalization)
  Sender: FDA-Public Use
  Company Number: PHHY2014LU068592

PATIENT
  Age: 36 Year
  Sex: Male

DRUGS (1)
  1. TEGRETOL [Suspect]
     Indication: BIPOLAR I DISORDER
     Dosage: 400 MG, TID (02 DF IN THE MORNING AND 01 DF IN THE EVENING)
     Route: 048
     Dates: start: 201404

REACTIONS (8)
  - Violence-related symptom [Recovered/Resolved]
  - Homicidal ideation [Recovered/Resolved]
  - Dementia [Unknown]
  - Suicidal ideation [Recovered/Resolved]
  - Hallucination, visual [Unknown]
  - Headache [Recovered/Resolved]
  - Lymphadenopathy [Recovered/Resolved]
  - Pruritus [Not Recovered/Not Resolved]
